FAERS Safety Report 7432774-X (Version None)
Quarter: 2011Q2

REPORT INFORMATION
  Report Type: 
  Country: None (occurrence: None)
  Receive Date: 20110422
  Receipt Date: 20110414
  Transmission Date: 20111010
  Serious: Yes (Other)
  Sender: FDA-Public Use
  Company Number: B0710406A

PATIENT

DRUGS (1)
  1. ZOVIRAX [Suspect]
     Indication: NEONATAL MUCOCUTANEOUS HERPES SIMPLEX
     Route: 042

REACTIONS (1)
  - LIVER FUNCTION TEST ABNORMAL [None]
